FAERS Safety Report 22111888 (Version 1)
Quarter: 2023Q1

REPORT INFORMATION
  Report Type: Spontaneous
  Country: US (occurrence: US)
  Receive Date: 20230318
  Receipt Date: 20230318
  Transmission Date: 20230417
  Serious: Yes (Hospitalization)
  Sender: FDA-Public Use
  Company Number: US-UNITED THERAPEUTICS-UNT-2023-006892

PATIENT
  Age: 67 Year
  Sex: Female
  Weight: 63.129 kg

DRUGS (4)
  1. TYVASO [Suspect]
     Active Substance: TREPROSTINIL
     Indication: Pulmonary arterial hypertension
     Dosage: 18 ?G, QID
  2. TYVASO [Suspect]
     Active Substance: TREPROSTINIL
     Dosage: UNK, QD
     Dates: start: 20230224
  3. TYVASO [Suspect]
     Active Substance: TREPROSTINIL
     Dosage: UNK, TID
     Dates: start: 20230223
  4. SILDENAFIL CITRATE [Concomitant]
     Active Substance: SILDENAFIL CITRATE
     Indication: Product used for unknown indication
     Dosage: UNK
     Route: 065

REACTIONS (5)
  - Dyspnoea [Unknown]
  - Dizziness [Unknown]
  - Tremor [Unknown]
  - Drug intolerance [Unknown]
  - Inappropriate schedule of product administration [Recovered/Resolved]

NARRATIVE: CASE EVENT DATE: 20230223
